FAERS Safety Report 6162252-X (Version None)
Quarter: 2009Q2

REPORT INFORMATION
  Report Type: 
  Country: None (occurrence: None)
  Receive Date: 20090417
  Receipt Date: 20090414
  Transmission Date: 20091009
  Serious: Yes (Hospitalization)
  Sender: FDA-Public Use
  Company Number: PL-EBEWE-0459CARBO09

PATIENT
  Age: 68 Year
  Sex: Female
  Weight: 60 kg

DRUGS (5)
  1. CARBOPLATIN [Suspect]
     Indication: LUNG NEOPLASM MALIGNANT
     Dosage: 600 MG, CYCLICAL, IV
     Route: 042
     Dates: start: 20090219, end: 20090219
  2. NOVELBINE INJECTION [Suspect]
     Indication: LUNG NEOPLASM MALIGNANT
     Dosage: 50 MG, CYCLICAL, IV
     Route: 042
     Dates: start: 20090219, end: 20090219
  3. METOPROLOL TARTRATE [Concomitant]
  4. METOCLOPRAMIDE [Concomitant]
  5. PROZAC [Concomitant]

REACTIONS (2)
  - GASTRITIS [None]
  - NEUTROPENIA [None]
